FAERS Safety Report 23132533 (Version 3)
Quarter: 2024Q2

REPORT INFORMATION
  Report Type: Spontaneous
  Country: US (occurrence: US)
  Receive Date: 20231101
  Receipt Date: 20240501
  Transmission Date: 20240716
  Serious: Yes (Other)
  Sender: FDA-Public Use
  Company Number: US-BRISTOL-MYERS SQUIBB COMPANY-2023-151611

PATIENT
  Age: 78 Year
  Sex: Male

DRUGS (2)
  1. LENALIDOMIDE [Suspect]
     Active Substance: LENALIDOMIDE
     Indication: Plasma cell myeloma
     Dosage: FREQUENCY: 1 CAPSULE (25MG TOTAL) BY MOUTH EVERY DAY ON DAYS 1-21 OF EACH 28 DAY CYCLE
     Route: 048
  2. LENALIDOMIDE [Suspect]
     Active Substance: LENALIDOMIDE
     Dosage: TAKE 1 CAPSULE BY MOUTH EVERY DAY ON DAYS 1-21 OF A 28 DAY CYCLE
     Route: 048
     Dates: start: 20230210

REACTIONS (13)
  - Laboratory test abnormal [Unknown]
  - COVID-19 [Unknown]
  - Neuropathy peripheral [Not Recovered/Not Resolved]
  - Diarrhoea [Unknown]
  - Depression [Unknown]
  - Anxiety [Not Recovered/Not Resolved]
  - Product dose omission issue [Unknown]
  - Back pain [Not Recovered/Not Resolved]
  - Fatigue [Recovering/Resolving]
  - Decreased appetite [Not Recovered/Not Resolved]
  - Weight increased [Not Recovered/Not Resolved]
  - Arthralgia [Not Recovered/Not Resolved]
  - Product use issue [Unknown]
